FAERS Safety Report 17553598 (Version 3)
Quarter: 2020Q2

REPORT INFORMATION
  Report Type: Spontaneous
  Country: US (occurrence: US)
  Receive Date: 20200318
  Receipt Date: 20200508
  Transmission Date: 20200713
  Serious: No
  Sender: FDA-Public Use
  Company Number: US-ASTRAZENECA-2020SE30179

PATIENT

DRUGS (1)
  1. FASENRA [Suspect]
     Active Substance: BENRALIZUMAB
     Indication: ASTHMA
     Dosage: ONCE EVERY 4 WEEKS AND THEN ONCE EVERY 8 WEEKS
     Route: 058
     Dates: start: 201912

REACTIONS (3)
  - Drug ineffective [Unknown]
  - Nasal polyps [Not Recovered/Not Resolved]
  - Influenza [Unknown]
